FAERS Safety Report 10661023 (Version 1)
Quarter: 2014Q4

REPORT INFORMATION
  Report Type: Spontaneous
  Country: GB (occurrence: GB)
  Receive Date: 20141218
  Receipt Date: 20141218
  Transmission Date: 20150529
  Serious: Yes (Hospitalization)
  Sender: FDA-Public Use
  Company Number: GB-ACCORD-027540

PATIENT
  Age: 73 Year
  Sex: Female

DRUGS (4)
  1. AMITRIPTYLINE [Suspect]
     Active Substance: AMITRIPTYLINE
     Indication: PRODUCT USED FOR UNKNOWN INDICATION
     Dosage: EVERY MORNING
  2. PULMICORT TURBUHALER [Concomitant]
     Active Substance: BUDESONIDE
  3. TERBUTALINE [Concomitant]
     Active Substance: TERBUTALINE
  4. BECONASE AQ [Concomitant]
     Active Substance: BECLOMETHASONE DIPROPIONATE MONOHYDRATE
     Dosage: 1-2 SPRAYS INTO EACH NOSTRIL ONCE DAILY.
     Route: 045

REACTIONS (2)
  - Syncope [Recovering/Resolving]
  - Atrial flutter [Recovering/Resolving]

NARRATIVE: CASE EVENT DATE: 20141118
